FAERS Safety Report 6326881-2 (Version None)
Quarter: 2009Q3

REPORT INFORMATION
  Report Type: 
  Country: None (occurrence: None)
  Receive Date: 20090825
  Receipt Date: 20090819
  Transmission Date: 20100115
  Serious: Yes (Hospitalization)
  Sender: FDA-Public Use
  Company Number: JP-JNJFOC-20090806788

PATIENT
  Age: 76 Year
  Sex: Male

DRUGS (8)
  1. ITRIZOLE [Suspect]
     Indication: DRUG USE FOR UNKNOWN INDICATION
     Route: 048
  2. CONIEL [Concomitant]
     Indication: HYPERTENSION
     Route: 048
  3. BLOPRESS [Concomitant]
     Route: 048
  4. LIPITOR [Concomitant]
     Route: 048
  5. GASTER [Concomitant]
     Route: 048
  6. SELBEX [Concomitant]
     Route: 048
  7. LASIX [Concomitant]
     Indication: OEDEMA
     Route: 065
  8. AROFUTO [Concomitant]
     Route: 048

REACTIONS (2)
  - BRADYCARDIA [None]
  - HYPOTENSION [None]
